FAERS Safety Report 24564905 (Version 1)
Quarter: 2024Q4

REPORT INFORMATION
  Report Type: Spontaneous
  Country: BE (occurrence: BE)
  Receive Date: 20241030
  Receipt Date: 20241030
  Transmission Date: 20250114
  Serious: Yes (Hospitalization)
  Sender: PFIZER
  Company Number: None

PATIENT
  Age: 56 Year
  Sex: Male
  Weight: 90 kg

DRUGS (3)
  1. METHOTREXATE [Suspect]
     Active Substance: METHOTREXATE
     Indication: Rheumatoid arthritis
     Dosage: 15 MG IN 1 DOSE/ PER WEEK
     Route: 048
     Dates: start: 20190722, end: 20191122
  2. HULIO [Suspect]
     Active Substance: ADALIMUMAB-FKJP
     Indication: Rheumatoid arthritis
     Dosage: UNK
     Route: 058
     Dates: start: 20210515
  3. ARAVA [Suspect]
     Active Substance: LEFLUNOMIDE
     Indication: Rheumatoid arthritis
     Dosage: 1 DF, 1X/DAY
     Route: 048
     Dates: start: 20210301, end: 20211118

REACTIONS (4)
  - Pericarditis [Recovered/Resolved]
  - Pulmonary pain [Recovered/Resolved]
  - Haematoma [Recovered/Resolved]
  - Neuralgia [Not Recovered/Not Resolved]
